FAERS Safety Report 23867363 (Version 1)
Quarter: 2024Q2

REPORT INFORMATION
  Report Type: Spontaneous
  Country: SE (occurrence: SE)
  Receive Date: 20240517
  Receipt Date: 20240517
  Transmission Date: 20240716
  Serious: Yes (Hospitalization, Disabling, Other)
  Sender: FDA-Public Use
  Company Number: None

PATIENT
  Age: 22 Year
  Sex: Female
  Weight: 51 kg

DRUGS (1)
  1. ETHINYL ESTRADIOL\ETONOGESTREL [Suspect]
     Active Substance: ETHINYL ESTRADIOL\ETONOGESTREL
     Indication: Contraception
     Dosage: BYTTE RING VAR 3E VECKA
     Route: 067
     Dates: start: 20240218, end: 20240328

REACTIONS (2)
  - Pulmonary embolism [Recovered/Resolved with Sequelae]
  - Pulmonary infarction [Recovered/Resolved with Sequelae]

NARRATIVE: CASE EVENT DATE: 20240422
